FAERS Safety Report 5273282-4 (Version None)
Quarter: 2007Q1

REPORT INFORMATION
  Report Type: 
  Country: None (occurrence: None)
  Receive Date: 20070319
  Receipt Date: 20070305
  Transmission Date: 20070707
  Serious: Yes (Death, Life-Threatening, Hospitalization)
  Sender: FDA-Public Use
  Company Number: 2007-00481

PATIENT
  Age: 80 Year
  Sex: Female

DRUGS (45)
  1. VELCADE [Suspect]
     Indication: MULTIPLE MYELOMA
     Dosage: 1.30 MG/M2, UNK, UNKNOWN
     Dates: start: 20070119, end: 20070122
  2. DECADRON [Concomitant]
  3. ALFAROL (ALFACALCIDOL) [Concomitant]
  4. PREDNISOLONE [Concomitant]
  5. DICLOFENAC SODIUM [Concomitant]
  6. SLOW-K [Concomitant]
  7. CARVEDILOL [Concomitant]
  8. ALDACTONE [Concomitant]
  9. ENALAPRIL MALEATE [Concomitant]
  10. LASIX [Concomitant]
  11. CLARITHROMYCIN [Concomitant]
  12. HALOPERIDOL [Concomitant]
  13. BAKTAR (SULFAMETHOXAZOLE, TRIMETHOPRIM) [Concomitant]
  14. PURSENNID (SENNA LEAF) [Concomitant]
  15. MAGNESIUM OXIDE (MAGNESIUM OXIDE) [Concomitant]
  16. CEFAZOLIN SODIUM [Concomitant]
  17. EXACIN (ISEPAMICIN SULFATE) [Concomitant]
  18. NEU-UP (NARTOGRASTIM) [Concomitant]
  19. ASPARA K (ASPARTATE POTASSIUM) [Concomitant]
  20. KYTRIL [Concomitant]
  21. SODIUM BICARBONATE [Concomitant]
  22. SOLU-MEDROL [Concomitant]
  23. GANCICLOVIR [Concomitant]
  24. MEROPEN (MEROPENEM) [Concomitant]
  25. AMIKACIN SULFATE [Concomitant]
  26. PREDNISOLONE [Concomitant]
  27. SOLDACTONE (POTASSIUM CANRENOATE) [Concomitant]
  28. PROCANIN (PROCAINE HYDROCHLORIDE) [Concomitant]
  29. MINOCYCLINE HCL [Concomitant]
  30. ALBUMIN (HUMAN) [Concomitant]
  31. HABEKACIN (ARBEKACIN) [Concomitant]
  32. FAMOTIDINE [Concomitant]
  33. ADONA (CARBAZOCHROME SODIUM SULFONATE) [Concomitant]
  34. TRANSAMIN (TRANEXAMIC ACID) [Concomitant]
  35. TARGOCID [Concomitant]
  36. CALCICOL (CALCIUM GLUCONATE) [Concomitant]
  37. HUMULIN (INSULIN HUMAN, INSULIN ISOPHANE, HUMAN BIOSYNTHETIC) [Concomitant]
  38. FUNGIZONE [Concomitant]
  39. HALOPERIDOL [Concomitant]
  40. KAYTWO (MENATETRENONE) [Concomitant]
  41. DORMICUM FOR INJECTION (MIDAZOLAM HYDROCHLORIDE) [Concomitant]
  42. DOPAMINE HYDROCHLORIDE [Concomitant]
  43. TIENAM (IMIPENEM, CILASTATIN) [Concomitant]
  44. FUNGUARD [Concomitant]
  45. PRODIF [Concomitant]

REACTIONS (16)
  - BACTERIAL INFECTION [None]
  - BLOOD PRESSURE DECREASED [None]
  - BRONCHOPNEUMONIA [None]
  - CARDIOMEGALY [None]
  - CYTOMEGALOVIRUS ANTIGEN POSITIVE [None]
  - DEMENTIA [None]
  - HYPOKALAEMIA [None]
  - IMMUNE SYSTEM DISORDER [None]
  - INTERSTITIAL LUNG DISEASE [None]
  - INTESTINAL ISCHAEMIA [None]
  - MELAENA [None]
  - PERICARDIAL EFFUSION [None]
  - PLEURAL EFFUSION [None]
  - PLEURAL FIBROSIS [None]
  - PNEUMONIA [None]
  - SUPERINFECTION [None]
